FAERS Safety Report 8818310 (Version 2)
Quarter: 2012Q4

REPORT INFORMATION
  Report Type: 
  Country: US (occurrence: US)
  Receive Date: 20121001
  Receipt Date: 20121012
  Transmission Date: 20130627
  Serious: Yes (Death, Hospitalization)
  Sender: FDA-Public Use
  Company Number: US-CELGENEUS-163-21880-12082809

PATIENT
  Sex: Female

DRUGS (13)
  1. REVLIMID [Suspect]
     Indication: MULTIPLE MYELOMA
     Dosage: 25 Milligram
     Route: 048
     Dates: start: 20120101
  2. REVLIMID [Suspect]
     Dosage: 25 Milligram
     Route: 048
     Dates: start: 201207
  3. REVLIMID [Suspect]
     Dosage: 15 Milligram
     Route: 048
     Dates: start: 201208, end: 2012
  4. ACYCLOVIR [Concomitant]
     Indication: DRUG USE FOR UNKNOWN INDICATION
     Dosage: 400 Milligram
     Route: 048
  5. CALCIUM CITRATE [Concomitant]
     Indication: DRUG USE FOR UNKNOWN INDICATION
     Route: 065
  6. COLACE [Concomitant]
     Indication: DRUG USE FOR UNKNOWN INDICATION
     Dosage: 100 Milligram
     Route: 048
  7. DILAUDID [Concomitant]
     Indication: DRUG USE FOR UNKNOWN INDICATION
     Dosage: 2 Milligram
     Route: 048
  8. DOXORUBICIN HCL [Concomitant]
     Indication: DRUG USE FOR UNKNOWN INDICATION
     Dosage: 10
     Route: 065
  9. FENTANYL [Concomitant]
     Indication: DRUG USE FOR UNKNOWN INDICATION
     Dosage: 75 Microgram
     Route: 065
  10. GRANISETRON HCL [Concomitant]
     Indication: DRUG USE FOR UNKNOWN INDICATION
     Dosage: 10
     Route: 065
  11. LORAZEPAM [Concomitant]
     Indication: DRUG USE FOR UNKNOWN INDICATION
     Dosage: 1 Milligram
     Route: 048
  12. METOPROLOL SUCCINATE [Concomitant]
     Indication: DRUG USE FOR UNKNOWN INDICATION
     Route: 065
  13. PEPCID [Concomitant]
     Indication: DRUG USE FOR UNKNOWN INDICATION
     Dosage: 40 Milligram
     Route: 048

REACTIONS (2)
  - Plasma cell myeloma recurrent [Fatal]
  - Platelet count decreased [Not Recovered/Not Resolved]
